FAERS Safety Report 20984907 (Version 3)
Quarter: 2023Q1

REPORT INFORMATION
  Report Type: Other
  Country: US (occurrence: None)
  Receive Date: 20220621
  Receipt Date: 20230310
  Transmission Date: 20230417
  Serious: Yes (Other)
  Sender: FDA-Public Use
  Company Number: US-ROCHE-3000791

PATIENT
  Age: 56 Year
  Sex: Female

DRUGS (1)
  1. XELODA [Suspect]
     Active Substance: CAPECITABINE
     Indication: Malignant neoplasm of ampulla of Vater
     Dosage: TAKE 2 TABLET(S) BY MOUTH TWICE A DAY AFTER MEALS 2 WEEK(S) ON, 1 WEEK(S) OFF.?800MG TAKE 3 TAB PO B
     Route: 048

REACTIONS (3)
  - Off label use [Unknown]
  - COVID-19 [Unknown]
  - Pancreatitis [Unknown]
